FAERS Safety Report 12375086 (Version 1)
Quarter: 2016Q2

REPORT INFORMATION
  Report Type: Report from Study
  Country: IQ (occurrence: IQ)
  Receive Date: 20160517
  Receipt Date: 20160517
  Transmission Date: 20160815
  Serious: Yes (Other)
  Sender: FDA-Public Use
  Company Number: PHHY2015IQ107780

PATIENT
  Sex: Male

DRUGS (1)
  1. TASIGNA [Suspect]
     Active Substance: NILOTINIB
     Indication: PRODUCT USED FOR UNKNOWN INDICATION
     Dosage: 800 MG, QD
     Route: 048
     Dates: start: 2012

REACTIONS (4)
  - Nephrolithiasis [Recovering/Resolving]
  - Arthralgia [Not Recovered/Not Resolved]
  - Fluid intake reduced [Unknown]
  - Flank pain [Unknown]

NARRATIVE: CASE EVENT DATE: 2015
